FAERS Safety Report 4369691-8 (Version None)
Quarter: 2004Q2

REPORT INFORMATION
  Report Type: 
  Country: None (occurrence: None)
  Receive Date: 20040527
  Receipt Date: 20040524
  Transmission Date: 20050107
  Serious: Yes (Other)
  Sender: FDA-Public Use
  Company Number: 2004-05-1278

PATIENT
  Age: 71 Year
  Sex: Female

DRUGS (3)
  1. REBETOL [Suspect]
     Indication: HEPATITIS C
     Dosage: 600 MG ORAL
     Route: 048
     Dates: start: 20020513, end: 20021025
  2. INTRON A [Suspect]
     Indication: HEPATITIS C
     Dosage: 3 MIU INTRAMUSCULAR
     Route: 030
     Dates: start: 20020513, end: 20021025
  3. INTERFERON [Suspect]
     Indication: HEPATITIS C
     Dosage: AFTER 26OCT02

REACTIONS (2)
  - BREAST CANCER RECURRENT [None]
  - METASTASES TO BONE [None]
